FAERS Safety Report 24546654 (Version 2)
Quarter: 2025Q2

REPORT INFORMATION
  Report Type: Spontaneous
  Country: JP (occurrence: JP)
  Receive Date: 20241024
  Receipt Date: 20250408
  Transmission Date: 20250717
  Serious: Yes (Other)
  Sender: ALEXION PHARMACEUTICALS
  Company Number: JP-ASTRAZENECA-240077156_012620_P_1

PATIENT
  Age: 54 Year
  Weight: 59 kg

DRUGS (26)
  1. FASLODEX [Suspect]
     Active Substance: FULVESTRANT
     Indication: Breast cancer
  2. FASLODEX [Suspect]
     Active Substance: FULVESTRANT
     Dosage: DOSE UNKNOWN
  3. FASLODEX [Suspect]
     Active Substance: FULVESTRANT
     Dosage: DOSE UNKNOWN
  4. TRUQAP [Suspect]
     Active Substance: CAPIVASERTIB
     Indication: Breast cancer
     Dosage: 200 MILLIGRAM, BID
  5. TRUQAP [Suspect]
     Active Substance: CAPIVASERTIB
     Dosage: 400 MILLIGRAM, BID, (ON A 4-DAYS-ON, 3-DAYS-OFF SCHEDULE)
  6. GOSERELIN [Suspect]
     Active Substance: GOSERELIN
     Indication: Breast cancer
  7. GOSERELIN [Suspect]
     Active Substance: GOSERELIN
  8. GOSERELIN [Suspect]
     Active Substance: GOSERELIN
  9. GOSERELIN [Suspect]
     Active Substance: GOSERELIN
  10. GOSERELIN [Suspect]
     Active Substance: GOSERELIN
  11. LYNPARZA [Suspect]
     Active Substance: OLAPARIB
     Indication: Breast cancer
  12. VONOPRAZAN FUMARATE [Concomitant]
     Active Substance: VONOPRAZAN FUMARATE
     Indication: Abdominal pain upper
     Dosage: 10 MILLIGRAM, QD
  13. PALBOCICLIB [Concomitant]
     Active Substance: PALBOCICLIB
     Indication: Breast cancer
     Route: 065
  14. PALBOCICLIB [Concomitant]
     Active Substance: PALBOCICLIB
     Route: 065
  15. LETROZOLE [Concomitant]
     Active Substance: LETROZOLE
     Indication: Breast cancer
     Route: 065
  16. DENOSUMAB [Concomitant]
     Active Substance: DENOSUMAB
     Route: 065
  17. Recombinant human ADAMTS-13 [Concomitant]
     Indication: Breast cancer
     Route: 065
  18. VINORELBINE TARTRATE [Concomitant]
     Active Substance: VINORELBINE TARTRATE
     Indication: Breast cancer
     Route: 065
  19. ABEMACICLIB [Concomitant]
     Active Substance: ABEMACICLIB
     Indication: Breast cancer
     Route: 065
  20. PACLITAXEL [Concomitant]
     Active Substance: PACLITAXEL
     Indication: Breast cancer
     Route: 065
  21. BEVACIZUMAB [Concomitant]
     Active Substance: BEVACIZUMAB
     Indication: Breast cancer
     Route: 065
  22. DOXIFLURIDINE [Concomitant]
     Active Substance: DOXIFLURIDINE
     Indication: Breast cancer
     Route: 065
  23. MEDROXYPROGESTERONE ACETATE [Concomitant]
     Active Substance: MEDROXYPROGESTERONE ACETATE
     Indication: Breast cancer
     Route: 065
  24. CYCLOPHOSPHAMIDE [Concomitant]
     Active Substance: CYCLOPHOSPHAMIDE
     Indication: Breast cancer
     Route: 065
  25. LEUPLIN [Concomitant]
     Active Substance: LEUPROLIDE ACETATE
     Indication: Breast cancer
     Route: 065
  26. CETUXIMAB [Concomitant]
     Active Substance: CETUXIMAB
     Indication: Breast cancer
     Route: 065

REACTIONS (12)
  - Tumour marker increased [Unknown]
  - Metastases to bone [Unknown]
  - Metastases to liver [Unknown]
  - Ascites [Unknown]
  - Hepatic function abnormal [Recovering/Resolving]
  - Keratitis [Unknown]
  - Diarrhoea [Unknown]
  - Abdominal pain [Unknown]
  - Thrombomodulin increased [Unknown]
  - Oedema [Recovering/Resolving]
  - Disorientation [Unknown]
  - Adverse event [Unknown]
